FAERS Safety Report 17016321 (Version 1)
Quarter: 2019Q4

REPORT INFORMATION
  Report Type: Spontaneous
  Country: NO (occurrence: NO)
  Receive Date: 20191111
  Receipt Date: 20191111
  Transmission Date: 20200122
  Serious: No
  Sender: FDA-Public Use
  Company Number: NO-PFIZER INC-2019479898

PATIENT
  Age: 28 Year
  Sex: Female
  Weight: 69 kg

DRUGS (2)
  1. BEMFOLA [Concomitant]
     Active Substance: FOLLITROPIN
     Dosage: UNK
     Dates: start: 20191002, end: 20191011
  2. SYNARELA [Suspect]
     Active Substance: NAFARELIN ACETATE
     Indication: IN VITRO FERTILISATION
     Dosage: 200 UG, 3 SPRAY EVERY 8 HOUR, IN ONE NOSTRIL (TOTAL 3 SPRAY A DAY)
     Route: 045
     Dates: start: 20190912, end: 20191012

REACTIONS (4)
  - Off label use [Unknown]
  - Depression [Recovered/Resolved]
  - Depressed mood [Recovered/Resolved]
  - Product use issue [Unknown]

NARRATIVE: CASE EVENT DATE: 20190912
